FAERS Safety Report 4430775-7 (Version None)
Quarter: 2004Q3

REPORT INFORMATION
  Report Type: 
  Country: None (occurrence: None)
  Receive Date: 20040818
  Receipt Date: 20040802
  Transmission Date: 20050211
  Serious: No
  Sender: FDA-Public Use
  Company Number: 2004AC00192

PATIENT
  Sex: Male
  Weight: 1.7 kg

DRUGS (1)
  1. ATENOLOL [Suspect]

REACTIONS (13)
  - CAESAREAN SECTION [None]
  - CARDIAC MURMUR [None]
  - DRUG EXPOSURE DURING PREGNANCY [None]
  - FOETAL GROWTH RETARDATION [None]
  - FOETAL HEART RATE DECREASED [None]
  - HYPOGLYCAEMIA NEONATAL [None]
  - HYPOSPADIAS [None]
  - MATERNAL CONDITION AFFECTING FOETUS [None]
  - NEONATAL DISORDER [None]
  - PULMONARY VALVE STENOSIS [None]
  - PYELOCALIECTASIS [None]
  - SMALL FOR DATES BABY [None]
  - WEIGHT GAIN POOR [None]
